FAERS Safety Report 12980956 (Version 1)
Quarter: 2016Q4

REPORT INFORMATION
  Report Type: Spontaneous
  Country: US (occurrence: US)
  Receive Date: 20161128
  Receipt Date: 20161128
  Transmission Date: 20170207
  Serious: No
  Sender: FDA-Public Use
  Company Number: US-TEVA-708456USA

PATIENT
  Age: 64 Year
  Sex: Female
  Weight: 81.72 kg

DRUGS (3)
  1. QVAR [Suspect]
     Active Substance: BECLOMETHASONE DIPROPIONATE
     Indication: OXYGEN SATURATION
     Dates: start: 20161018, end: 20161019
  2. CLINDAMYCIN. [Concomitant]
     Active Substance: CLINDAMYCIN
     Indication: BRONCHITIS
     Dates: end: 20161019
  3. HORIZANT [Concomitant]
     Active Substance: GABAPENTIN ENACARBIL
     Indication: PAIN

REACTIONS (3)
  - Throat irritation [Not Recovered/Not Resolved]
  - Pharyngeal erythema [Unknown]
  - Oropharyngeal pain [Not Recovered/Not Resolved]

NARRATIVE: CASE EVENT DATE: 20161018
